FAERS Safety Report 8457424-5 (Version None)
Quarter: 2012Q2

REPORT INFORMATION
  Report Type: 
  Country: None (occurrence: None)
  Receive Date: 20120621
  Receipt Date: 20120618
  Transmission Date: 20120825
  Serious: Yes (Hospitalization)
  Sender: FDA-Public Use
  Company Number: FR-TEVA-337189USA

PATIENT
  Sex: Male
  Weight: 94.5 kg

DRUGS (9)
  1. TREANDA [Suspect]
     Route: 042
  2. CHLORAMBUCIL [Suspect]
     Route: 048
     Dates: start: 20120112, end: 20120408
  3. FLUINDIONE [Concomitant]
  4. BUDESONIDE W/FORMOTEROL FUMARATE [Concomitant]
  5. SIMVASTATIN [Concomitant]
  6. TIOTROPIUM [Concomitant]
  7. RITUXIMAB [Suspect]
     Dosage: 33.3333 MILLIGRAM;
     Dates: start: 20120112, end: 20120402
  8. BISOPROLOL [Concomitant]
  9. IRBESARTAN [Concomitant]

REACTIONS (2)
  - BRONCHITIS [None]
  - HYPERGLYCAEMIA [None]
